FAERS Safety Report 23767460 (Version 2)
Quarter: 2024Q2

REPORT INFORMATION
  Report Type: Spontaneous
  Country: US (occurrence: US)
  Receive Date: 20240422
  Receipt Date: 20240509
  Transmission Date: 20240716
  Serious: No
  Sender: FDA-Public Use
  Company Number: US-ALCON LABORATORIES-ALC2023US004331

PATIENT
  Age: 90 Year
  Sex: Female

DRUGS (2)
  1. ROCKLATAN [Suspect]
     Active Substance: LATANOPROST\NETARSUDIL MESYLATE
     Indication: Product used for unknown indication
     Dosage: ONE DROP EACH EYE AT NIGHT
     Route: 047
  2. ROCKLATAN [Suspect]
     Active Substance: LATANOPROST\NETARSUDIL MESYLATE
     Dosage: ONLY ONE DROP
     Route: 047

REACTIONS (3)
  - Product packaging quantity issue [Unknown]
  - Product dose omission issue [Unknown]
  - Product label issue [Unknown]

NARRATIVE: CASE EVENT DATE: 20230913
